FAERS Safety Report 23951380 (Version 1)
Quarter: 2024Q2

REPORT INFORMATION
  Report Type: Spontaneous
  Country: ES (occurrence: ES)
  Receive Date: 20240607
  Receipt Date: 20240607
  Transmission Date: 20240715
  Serious: Yes (Hospitalization)
  Sender: FDA-Public Use
  Company Number: None

PATIENT
  Age: 89 Year
  Sex: Female

DRUGS (2)
  1. TRAMADOL [Interacting]
     Active Substance: TRAMADOL\TRAMADOL HYDROCHLORIDE
     Indication: Back injury
     Dosage: 300 MILLIGRAM, QD
     Route: 048
     Dates: start: 20240429
  2. FENTANYL [Interacting]
     Active Substance: FENTANYL\FENTANYL CITRATE
     Indication: Back injury
     Dosage: 12.6 MILLIGRAM, Q2D 1 PATCH (75 MCG/HOUR)/2 DAYS
     Route: 062
     Dates: start: 20221110

REACTIONS (3)
  - Urinary retention [Recovering/Resolving]
  - Vomiting [Recovering/Resolving]
  - Drug interaction [Unknown]

NARRATIVE: CASE EVENT DATE: 20240522
